FAERS Safety Report 5696168-X (Version None)
Quarter: 2008Q2

REPORT INFORMATION
  Report Type: 
  Country: None (occurrence: None)
  Receive Date: 20080407
  Receipt Date: 20080404
  Transmission Date: 20081010
  Serious: Yes (Life-Threatening, Hospitalization)
  Sender: FDA-Public Use
  Company Number: GB-AVENTIS-200812903GDDC

PATIENT
  Age: 42 Year
  Sex: Female

DRUGS (11)
  1. RIFAMPICIN [Suspect]
     Indication: STAPHYLOCOCCAL INFECTION
     Route: 048
     Dates: start: 20080211, end: 20080304
  2. DOXYCYCLINE [Suspect]
     Indication: STAPHYLOCOCCAL INFECTION
     Route: 048
     Dates: start: 20080211, end: 20080304
  3. AMITRIPTYLINE HCL [Concomitant]
     Route: 048
  4. BACLOFEN [Concomitant]
     Route: 048
  5. DICLOFENAC SODIUM [Concomitant]
     Route: 048
  6. LACTULOSE [Concomitant]
     Indication: CONSTIPATION
     Route: 048
  7. OMEPRAZOLE [Concomitant]
     Route: 048
  8. OXYCODONE HYDROCHLORIDE [Concomitant]
     Route: 048
  9. OXYCODONE HYDROCHLORIDE [Concomitant]
     Route: 048
  10. PARACETAMOL [Concomitant]
     Route: 048
  11. SENNA [Concomitant]
     Route: 048

REACTIONS (4)
  - BLISTER [None]
  - CHILLS [None]
  - MALAISE [None]
  - PAIN [None]
